FAERS Safety Report 4625891-0 (Version None)
Quarter: 2005Q1

REPORT INFORMATION
  Report Type: 
  Country: None (occurrence: None)
  Receive Date: 20050330
  Receipt Date: 20050314
  Transmission Date: 20050727
  Serious: Yes (Hospitalization)
  Sender: FDA-Public Use
  Company Number: DE_050215261

PATIENT
  Age: 59 Year
  Sex: Male
  Weight: 100 kg

DRUGS (3)
  1. GEMZAR [Suspect]
     Indication: MALIGNANT URINARY TRACT NEOPLASM
     Dosage: 1000 MG/M2
     Dates: start: 20041207, end: 20050101
  2. CARBOPLATIN [Concomitant]
  3. ATENOLOL [Concomitant]

REACTIONS (11)
  - ANAEMIA [None]
  - BLOOD CREATININE INCREASED [None]
  - BLOOD PRESSURE INCREASED [None]
  - CARDIAC FAILURE [None]
  - CARDIOMEGALY [None]
  - MITRAL VALVE INCOMPETENCE [None]
  - OEDEMA PERIPHERAL [None]
  - PLEURAL EFFUSION [None]
  - PULMONARY CONGESTION [None]
  - VENTRICULAR HYPOKINESIA [None]
  - WEIGHT INCREASED [None]
